FAERS Safety Report 9803048 (Version 1)
Quarter: 2014Q1

REPORT INFORMATION
  Report Type: Spontaneous
  Country: US (occurrence: None)
  Receive Date: 20140106
  Receipt Date: 20140106
  Transmission Date: 20141002
  Serious: Yes (Hospitalization)
  Sender: FDA-Public Use
  Company Number: None

PATIENT
  Age: 54 Year
  Sex: Female

DRUGS (10)
  1. SPIRONOLACTONE [Suspect]
     Indication: CARDIAC FAILURE CONGESTIVE
     Dosage: 1 PILL, DAILY, MOUTH
     Route: 048
     Dates: start: 20131204, end: 20131228
  2. ALPRAZOLAM [Concomitant]
  3. AMITRIPTYLINE [Concomitant]
  4. ATORVASTATIN [Concomitant]
  5. BENICAR [Concomitant]
  6. B12 [Concomitant]
  7. DIPHENOXYLATE [Concomitant]
  8. FOLIC ACID [Concomitant]
  9. OMEPRAZOLE [Concomitant]
  10. EFFEXOR XR [Concomitant]

REACTIONS (12)
  - Malaise [None]
  - Fatigue [None]
  - Asthenia [None]
  - Heart rate irregular [None]
  - Abdominal pain [None]
  - Gingival bleeding [None]
  - Oropharyngeal pain [None]
  - Pharyngeal oedema [None]
  - Swelling face [None]
  - Dizziness [None]
  - Nausea [None]
  - Confusional state [None]
